FAERS Safety Report 8112025-3 (Version None)
Quarter: 2012Q1

REPORT INFORMATION
  Report Type: 
  Country: None (occurrence: None)
  Receive Date: 20120203
  Receipt Date: 20120131
  Transmission Date: 20120608
  Serious: Yes (Other)
  Sender: FDA-Public Use
  Company Number: US-BAYER-2011-093746

PATIENT
  Age: 63 Year
  Sex: Male
  Weight: 63.492 kg

DRUGS (3)
  1. MAGNEVIST [Suspect]
     Indication: NEUROMA
     Dosage: 7 ML, ONCE
     Dates: start: 20110623, end: 20110623
  2. MAGNEVIST [Suspect]
     Dosage: 7 ML, ONCE
     Dates: start: 20110623, end: 20110623
  3. ASPIRIN [Concomitant]

REACTIONS (3)
  - PAIN IN EXTREMITY [None]
  - CONTUSION [None]
  - OEDEMA PERIPHERAL [None]
